FAERS Safety Report 10554240 (Version 5)
Quarter: 2014Q4

REPORT INFORMATION
  Report Type: Spontaneous
  Country: ES (occurrence: ES)
  Receive Date: 20141030
  Receipt Date: 20141126
  Transmission Date: 20150529
  Serious: Yes (Other)
  Sender: FDA-Public Use
  Company Number: ES-JNJFOC-20141015020

PATIENT
  Age: 53 Year
  Sex: Female
  Weight: 70 kg

DRUGS (7)
  1. ANXIOLYTIC (UNSPECIFIED) [Concomitant]
     Indication: NERVOUSNESS
  2. LORAZEPAM. [Concomitant]
     Active Substance: LORAZEPAM
  3. DEPRAX [Concomitant]
     Active Substance: TRAZODONE HYDROCHLORIDE
  4. RIBAVIRINE [Suspect]
     Active Substance: RIBAVIRIN
     Indication: HEPATITIS C
     Route: 065
     Dates: start: 20141002, end: 20141114
  5. PEGASYS [Suspect]
     Active Substance: PEGINTERFERON ALFA-2A
     Indication: HEPATITIS C
     Route: 065
     Dates: start: 20141002, end: 20141114
  6. OLYSIO [Suspect]
     Active Substance: SIMEPREVIR
     Indication: HEPATITIS C
     Route: 048
     Dates: start: 20141002, end: 20141114
  7. PRISTIQ EXTENDED RELEASE [Concomitant]
     Active Substance: DESVENLAFAXINE SUCCINATE

REACTIONS (7)
  - Optic neuritis [Not Recovered/Not Resolved]
  - Jaundice [Unknown]
  - Choroiditis [Not Recovered/Not Resolved]
  - Blood bilirubin increased [Unknown]
  - Pruritus [Unknown]
  - Asthenia [Not Recovered/Not Resolved]
  - Retinopathy [Unknown]

NARRATIVE: CASE EVENT DATE: 201410
